FAERS Safety Report 19120348 (Version 1)
Quarter: 2021Q2

REPORT INFORMATION
  Report Type: Spontaneous
  Country: US (occurrence: US)
  Receive Date: 20210412
  Receipt Date: 20210412
  Transmission Date: 20210717
  Serious: Yes (Hospitalization, Other)
  Sender: FDA-Public Use
  Company Number: US-OXFORD PHARMACEUTICALS, LLC-2109187

PATIENT
  Sex: Male
  Weight: 3.37 kg

DRUGS (3)
  1. MACROBID [Concomitant]
     Active Substance: NITROFURANTOIN\NITROFURANTOIN MONOHYDRATE
     Route: 064
  2. SERTRALINE HYDROCHLORIDE. [Suspect]
     Active Substance: SERTRALINE HYDROCHLORIDE
     Indication: PRODUCT USED FOR UNKNOWN INDICATION
     Route: 064
  3. PRENATAL VITAMINS [Concomitant]
     Active Substance: VITAMINS
     Route: 064

REACTIONS (4)
  - Neonatal behavioural syndrome [Recovered/Resolved]
  - Foetal exposure during pregnancy [Unknown]
  - Neonatal respiratory depression [Recovered/Resolved]
  - Neonatal hypoxia [Recovered/Resolved]
